FAERS Safety Report 4698067-9 (Version None)
Quarter: 2005Q2

REPORT INFORMATION
  Report Type: 
  Country: None (occurrence: None)
  Receive Date: 20050622
  Receipt Date: 20050622
  Transmission Date: 20051028
  Serious: Yes (Death)
  Sender: FDA-Public Use
  Company Number: None

PATIENT
  Sex: Male
  Weight: 79 kg

DRUGS (2)
  1. TEMOZOLOMIDE [Suspect]
     Indication: GLIOBLASTOMA MULTIFORME
     Dosage: 75 MG/M2/DAY PO QAM FOR 6 WEEKS (START TAKING TEMOZOLOMIDE IN THE MORNING BEGINNING THE SAME DAY AS
     Route: 048
     Dates: start: 20050323
  2. RADIATION [Suspect]
     Dosage: 2.0 GY X 30 FRACTIONS, 5 DAYS A WEEK X 6 WEEKS FOR A TOTAL DOSE OF 60 GY

REACTIONS (20)
  - ALPHA HAEMOLYTIC STREPTOCOCCAL INFECTION [None]
  - APHASIA [None]
  - ASTHENIA [None]
  - ASTROCYTOMA [None]
  - BLOOD PRESSURE DECREASED [None]
  - CYST DRAINAGE [None]
  - DYSPHASIA [None]
  - FACIAL PALSY [None]
  - FEBRILE NEUTROPENIA [None]
  - GRAND MAL CONVULSION [None]
  - HEMIPARESIS [None]
  - HEMIPLEGIA [None]
  - MOBILITY DECREASED [None]
  - NEOPLASM PROGRESSION [None]
  - NEUROLOGICAL SYMPTOM [None]
  - NEUTROPHIL COUNT ABNORMAL [None]
  - NUCLEAR MAGNETIC RESONANCE IMAGING ABNORMAL [None]
  - POST PROCEDURAL COMPLICATION [None]
  - URINARY INCONTINENCE [None]
  - WHITE BLOOD CELL DISORDER [None]
